FAERS Safety Report 12613608 (Version 1)
Quarter: 2016Q3

REPORT INFORMATION
  Report Type: Spontaneous
  Country: US (occurrence: US)
  Receive Date: 20160802
  Receipt Date: 20160802
  Transmission Date: 20161109
  Serious: Yes (Hospitalization, Other)
  Sender: FDA-Public Use
  Company Number: US-WATSON-2016-16869

PATIENT
  Sex: Female

DRUGS (2)
  1. BUTALBITAL, ACETAMINOPHEN, AND CAFFEINE [Suspect]
     Active Substance: ACETAMINOPHEN\BUTALBITAL\CAFFEINE
     Indication: MIGRAINE
     Route: 065
  2. TREPROSTINIL [Suspect]
     Active Substance: TREPROSTINIL
     Indication: PULMONARY ARTERIAL HYPERTENSION
     Dosage: 1.125 MG, THREE TIMES DAILY
     Route: 048
     Dates: start: 20140606

REACTIONS (3)
  - Cerebrovascular accident [Unknown]
  - Loss of consciousness [Unknown]
  - Migraine [Unknown]

NARRATIVE: CASE EVENT DATE: 20160704
